FAERS Safety Report 9293025 (Version 1)
Quarter: 2013Q2

REPORT INFORMATION
  Report Type: Spontaneous
  Country: US (occurrence: None)
  Receive Date: 20130515
  Receipt Date: 20130515
  Transmission Date: 20140414
  Serious: Yes (Hospitalization)
  Sender: FDA-Public Use
  Company Number: None

PATIENT
  Age: 38 Year
  Sex: Female
  Weight: 59.88 kg

DRUGS (1)
  1. LACTAID FAST ACT [Suspect]
     Indication: DYSPEPSIA
     Dosage: 1 TABLET
     Dates: start: 20130513, end: 20130513

REACTIONS (4)
  - Vomiting [None]
  - Diarrhoea [None]
  - Hyperhidrosis [None]
  - Haematemesis [None]
